FAERS Safety Report 5501981-5 (Version None)
Quarter: 2007Q4

REPORT INFORMATION
  Report Type: 
  Country: None (occurrence: None)
  Receive Date: 20071030
  Receipt Date: 20071025
  Transmission Date: 20080405
  Serious: Yes (Other)
  Sender: FDA-Public Use
  Company Number: A0687685A

PATIENT
  Age: 52 Year
  Sex: Male
  Weight: 102.3 kg

DRUGS (10)
  1. COREG CR [Suspect]
     Indication: HYPERTENSION
     Dosage: 80MG PER DAY
     Route: 048
     Dates: start: 20070601
  2. GLUCOPHAGE [Concomitant]
     Dosage: 500MG TWICE PER DAY
     Route: 048
  3. ZETIA [Concomitant]
     Indication: BLOOD CHOLESTEROL INCREASED
     Dosage: 10MG PER DAY
     Route: 048
  4. GLIMEPIRIDE [Concomitant]
     Dosage: .5MG PER DAY
     Route: 048
  5. LASIX [Concomitant]
     Dosage: 40MG PER DAY
     Route: 048
  6. POTASSIUM CHLORIDE [Concomitant]
     Dosage: 20MG PER DAY
     Route: 048
  7. ZOCOR [Concomitant]
     Indication: BLOOD CHOLESTEROL INCREASED
     Dosage: 20MG PER DAY
     Route: 048
  8. IRON [Concomitant]
     Dosage: 32G TWICE PER DAY
     Route: 048
  9. ASCORBIC ACID [Concomitant]
     Dosage: 500MG TWICE PER DAY
     Route: 048
  10. ATACAND [Concomitant]
     Indication: HYPERTENSION
     Dosage: 32MG PER DAY
     Route: 048

REACTIONS (1)
  - YELLOW SKIN [None]
